FAERS Safety Report 4970047-5 (Version None)
Quarter: 2006Q2

REPORT INFORMATION
  Report Type: 
  Country: None (occurrence: None)
  Receive Date: 20060406
  Receipt Date: 20060328
  Transmission Date: 20061013
  Serious: Yes (Hospitalization)
  Sender: FDA-Public Use
  Company Number: 166986

PATIENT
  Age: 57 Year
  Sex: Male

DRUGS (4)
  1. AVONEX [Suspect]
     Indication: MULTIPLE SCLEROSIS
     Dosage: IM
     Route: 030
  2. AVONEX [Suspect]
     Indication: MULTIPLE SCLEROSIS
     Dosage: 30 UG;QW;IM
     Route: 030
     Dates: start: 20020401
  3. NEXIUM [Concomitant]
  4. ZOLOFT [Concomitant]

REACTIONS (13)
  - ABDOMINAL PAIN UPPER [None]
  - ANGIOPATHY [None]
  - ASTHENIA [None]
  - ATRIAL FIBRILLATION [None]
  - CONDITION AGGRAVATED [None]
  - FEELING COLD [None]
  - GASTROINTESTINAL NECROSIS [None]
  - HEART RATE IRREGULAR [None]
  - INCISION SITE COMPLICATION [None]
  - LETHARGY [None]
  - SMALL INTESTINAL RESECTION [None]
  - VOMITING [None]
  - WEIGHT DECREASED [None]
